FAERS Safety Report 9202310 (Version 1)
Quarter: 2013Q1

REPORT INFORMATION
  Report Type: Spontaneous
  Country: US (occurrence: None)
  Receive Date: 20130329
  Receipt Date: 20130329
  Transmission Date: 20140127
  Serious: Yes (Life-Threatening, Other)
  Sender: FDA-Public Use
  Company Number: None

PATIENT
  Age: 65 Year
  Sex: Female
  Weight: 50.3 kg

DRUGS (21)
  1. XARELTO 20MG JANSSEN [Suspect]
     Indication: ATRIAL FIBRILLATION
     Route: 048
     Dates: start: 20130325, end: 20130327
  2. XARELTO 20MG JANSSEN [Suspect]
     Indication: THROMBOSIS PROPHYLAXIS
     Route: 048
     Dates: start: 20130325, end: 20130327
  3. PERCOCET [Concomitant]
  4. LIPITOR [Concomitant]
  5. CALCIUM CITRATE [Concomitant]
  6. CELEBREX [Concomitant]
  7. CYCLOBENZAPINE [Concomitant]
  8. DIGOXIN [Concomitant]
  9. BENEDRYL [Concomitant]
  10. DULOEXETINE [Concomitant]
  11. FOLIC ACID [Concomitant]
  12. SYNTHROID [Concomitant]
  13. METHOTREXATE [Concomitant]
  14. LOVAZA [Concomitant]
  15. PROTONIX [Concomitant]
  16. LYRICA [Concomitant]
  17. CRESTIR [Concomitant]
  18. NACL [Concomitant]
  19. SOTALOL [Concomitant]
  20. MULTIVITAMIN [Concomitant]
  21. LOTEMAX OHTHALMIC SUSPENSION [Concomitant]

REACTIONS (4)
  - Anaemia [None]
  - Dehydration [None]
  - Hypotension [None]
  - Gastrointestinal haemorrhage [None]
